FAERS Safety Report 9109863 (Version 1)
Quarter: 2013Q1

REPORT INFORMATION
  Report Type: Spontaneous
  Country: SE (occurrence: SE)
  Receive Date: 20130222
  Receipt Date: 20130222
  Transmission Date: 20140127
  Serious: Yes (Death)
  Sender: FDA-Public Use
  Company Number: SE-JNJFOC-20130210182

PATIENT
  Sex: 0

DRUGS (3)
  1. INFLIXIMAB, RECOMBINANT [Suspect]
     Indication: ANKYLOSING SPONDYLITIS
     Dosage: DOSE: MEAN 212 MG/2.6MG/KG, AT MEAN 8 WEEKS INTERVAL.
     Route: 042
  2. METHOTREXATE [Concomitant]
     Indication: ANKYLOSING SPONDYLITIS
     Route: 065
  3. DISEASE MODIFYING ANTIRHEUMATIC DRUGS [Concomitant]
     Route: 065

REACTIONS (1)
  - Brain neoplasm [Fatal]
